FAERS Safety Report 6544333-1 (Version None)
Quarter: 2010Q1

REPORT INFORMATION
  Report Type: 
  Country: None (occurrence: None)
  Receive Date: 20100120
  Receipt Date: 20100120
  Transmission Date: 20100710
  Serious: No
  Sender: FDA-Public Use
  Company Number: None

PATIENT
  Age: 54 Year
  Sex: Female
  Weight: 62.8 kg

DRUGS (1)
  1. ZICAM ALLERGY RELIEF GEL SWABS [Suspect]

REACTIONS (8)
  - ABDOMINAL PAIN [None]
  - AGEUSIA [None]
  - ANOSMIA [None]
  - DYSGEUSIA [None]
  - HEADACHE [None]
  - MALAISE [None]
  - NAUSEA [None]
  - PAROSMIA [None]
